FAERS Safety Report 15524469 (Version 2)
Quarter: 2018Q4

REPORT INFORMATION
  Report Type: Spontaneous
  Country: US (occurrence: US)
  Receive Date: 20181018
  Receipt Date: 20181126
  Transmission Date: 20190205
  Serious: No
  Sender: FDA-Public Use
  Company Number: US-PFIZER INC-2018246875

PATIENT
  Age: 54 Year
  Sex: Female
  Weight: 56.69 kg

DRUGS (2)
  1. HALCION [Suspect]
     Active Substance: TRIAZOLAM
     Indication: ANXIETY
  2. HALCION [Suspect]
     Active Substance: TRIAZOLAM
     Indication: DENTAL CARE
     Dosage: UNK

REACTIONS (5)
  - Product use in unapproved indication [Unknown]
  - Pre-existing condition improved [Unknown]
  - Somnolence [Unknown]
  - Therapeutic response unexpected [Unknown]
  - Euphoric mood [Unknown]
